FAERS Safety Report 11968848 (Version 2)
Quarter: 2016Q1

REPORT INFORMATION
  Report Type: Spontaneous
  Country: US (occurrence: US)
  Receive Date: 20160128
  Receipt Date: 20160322
  Transmission Date: 20160526
  Serious: No
  Sender: FDA-Public Use
  Company Number: CHPA2015US013882

PATIENT
  Age: 72 Year
  Sex: Female

DRUGS (1)
  1. LAMISIL [Suspect]
     Active Substance: TERBINAFINE HYDROCHLORIDE
     Indication: ONYCHOMYCOSIS
     Dosage: UNK UNK, QD
     Route: 061
     Dates: start: 201509, end: 201511

REACTIONS (3)
  - Product use issue [Unknown]
  - Nail discolouration [Unknown]
  - Nail necrosis [Recovered/Resolved]

NARRATIVE: CASE EVENT DATE: 201509
